FAERS Safety Report 9871345 (Version 2)
Quarter: 2014Q2

REPORT INFORMATION
  Report Type: Spontaneous
  Country: US (occurrence: US)
  Receive Date: 20140205
  Receipt Date: 20140513
  Transmission Date: 20141212
  Serious: Yes (Hospitalization)
  Sender: FDA-Public Use
  Company Number: US-INCYTE CORPORATION-2014IN000227

PATIENT
  Age: 68 Year
  Sex: Female
  Weight: 43 kg

DRUGS (11)
  1. JAKAFI [Suspect]
     Indication: MYELOFIBROSIS
     Dosage: 5 MG, QOD
  2. JAKAFI [Suspect]
     Dosage: 5 MG, EVERY 3 DAYS
     Route: 048
     Dates: start: 20130701
  3. LASIX                              /00032601/ [Concomitant]
     Dosage: 20 MG, QD
  4. METOPROLOL [Concomitant]
     Dosage: 50 MG, BID
  5. AMLODIPINE [Concomitant]
     Dosage: 10 MG, QD
  6. FOLBIC [Concomitant]
     Dosage: 1 DF, QD
  7. ZEMPLAR [Concomitant]
     Dosage: 1 MCG, QD
  8. HYDRALAZINE [Concomitant]
     Dosage: 10 MG, TID
  9. ALLOPURINOL [Concomitant]
     Dosage: 200 MG, QD
  10. VITAMIN D NOS [Concomitant]
     Dosage: 50000 UNITS/WK
  11. CLONIDINE [Concomitant]

REACTIONS (3)
  - Cardiac failure congestive [Recovered/Resolved]
  - Anaemia [Recovered/Resolved]
  - Drug dose omission [Unknown]
